FAERS Safety Report 10956267 (Version 2)
Quarter: 2017Q4

REPORT INFORMATION
  Report Type: Report from Study
  Country: US (occurrence: US)
  Receive Date: 20150326
  Receipt Date: 20171222
  Transmission Date: 20180320
  Serious: Yes (Hospitalization, Other)
  Sender: FDA-Public Use
  Company Number: US-SANOFI-AVENTIS-2013SA059378

PATIENT
  Age: 63 Year
  Sex: Female

DRUGS (1)
  1. AUBAGIO [Suspect]
     Active Substance: TERIFLUNOMIDE
     Indication: MULTIPLE SCLEROSIS
     Route: 048
     Dates: start: 20130525

REACTIONS (15)
  - Blindness unilateral [Unknown]
  - Multiple sclerosis relapse [Recovered/Resolved]
  - Multiple sclerosis relapse [Unknown]
  - Visual impairment [Unknown]
  - Eye pain [Unknown]
  - Memory impairment [Unknown]
  - Tooth extraction [Unknown]
  - Gingival bleeding [Recovered/Resolved]
  - Malaise [Unknown]
  - Bladder disorder [Not Recovered/Not Resolved]
  - Eating disorder [Unknown]
  - Pain [Unknown]
  - Bleeding time prolonged [Unknown]
  - Pollakiuria [Not Recovered/Not Resolved]
  - JC virus test positive [Unknown]

NARRATIVE: CASE EVENT DATE: 20171204
